FAERS Safety Report 25928826 (Version 3)
Quarter: 2025Q4

REPORT INFORMATION
  Report Type: Report from Study
  Country: EG (occurrence: EG)
  Receive Date: 20251016
  Receipt Date: 20251029
  Transmission Date: 20260118
  Serious: Yes (Disabling, Other)
  Sender: NOVARTIS
  Company Number: EG-002147023-NVSC2023EG175201

PATIENT
  Age: 68 Year
  Sex: Male
  Weight: 78 kg

DRUGS (25)
  1. ENTRESTO [Suspect]
     Active Substance: SACUBITRIL\VALSARTAN
     Indication: Cardiac failure
     Dosage: 1 DOSAGE FORM, BID, (50 MG)
     Route: 048
     Dates: start: 2021, end: 2022
  2. ENTRESTO [Suspect]
     Active Substance: SACUBITRIL\VALSARTAN
     Dosage: 1 DOSAGE FORM, BID, (100 MG)
     Route: 048
     Dates: start: 2022, end: 202306
  3. ENTRESTO [Suspect]
     Active Substance: SACUBITRIL\VALSARTAN
     Dosage: 50 MG, BID, ONE TABLET TWICE DAILY, END DATE 5 DAYS AGO
     Route: 048
     Dates: start: 202306
  4. ENTRESTO [Suspect]
     Active Substance: SACUBITRIL\VALSARTAN
     Dosage: 1 DOSAGE FORM, BID, (50 MG)
     Route: 065
     Dates: start: 20230716, end: 20230807
  5. ENTRESTO [Suspect]
     Active Substance: SACUBITRIL\VALSARTAN
     Dosage: 1 DOSAGE FORM, BID, (50 MG)
     Route: 065
  6. ENTRESTO [Suspect]
     Active Substance: SACUBITRIL\VALSARTAN
     Dosage: 1 DOSAGE FORM, BID (100 MG)
     Route: 048
     Dates: end: 20250613
  7. ENTRESTO [Suspect]
     Active Substance: SACUBITRIL\VALSARTAN
     Dosage: ONE TABLET OF ENTRESTO 100MG ONCE DAILY
     Route: 048
  8. ENTRESTO [Suspect]
     Active Substance: SACUBITRIL\VALSARTAN
     Dosage: UNK, OTHER (TABLET) (2 TO 3 MONTHS FROM 25 OCT 2025)
     Route: 048
  9. ASPIRIN [Concomitant]
     Active Substance: ASPIRIN
     Indication: Anticoagulant therapy
     Dosage: 1 DOSAGE FORM (100MG), QD TABLET
     Route: 048
     Dates: start: 20230716
  10. ASPIRIN [Concomitant]
     Active Substance: ASPIRIN
     Indication: Antiplatelet therapy
  11. BISOPROLOL FUMARATE [Concomitant]
     Active Substance: BISOPROLOL FUMARATE
     Indication: Hypertension
     Dosage: 1 DOSAGE FORM (2.5MG), QD, 2020 OR BEFORE AS PER PATIENT^S WORDS, TABLET
     Route: 048
     Dates: start: 2020
  12. BISOPROLOL FUMARATE [Concomitant]
     Active Substance: BISOPROLOL FUMARATE
     Indication: Cardiac disorder
  13. IVABRADINE HYDROCHLORIDE [Concomitant]
     Active Substance: IVABRADINE HYDROCHLORIDE
     Indication: Tilt table test
     Dosage: 1 DOSAGE FORM (5MG), BID, TABLET STARTED 3 TO 4 YEARS AGO AS PER PATIENTS^ WORDS
     Route: 048
  14. IVABRADINE HYDROCHLORIDE [Concomitant]
     Active Substance: IVABRADINE HYDROCHLORIDE
     Indication: Cardiac disorder
  15. TORSEMIDE [Concomitant]
     Active Substance: TORSEMIDE
     Indication: Diuretic therapy
     Dosage: 20 MG, STARTED YEARS AGO CAN^T REMEMBER WHEN EXACTLY
     Route: 065
  16. TORSEMIDE [Concomitant]
     Active Substance: TORSEMIDE
     Dosage: 10 MG, QD (TABLET)
     Route: 048
  17. INSULIN NOS [Concomitant]
     Active Substance: INSULIN NOS
     Indication: Diabetes mellitus
     Dosage: UNK, 26 UNITS ONCE, STARTED BEFORE ENTRESTO
     Route: 065
  18. INSULIN NOS [Concomitant]
     Active Substance: INSULIN NOS
     Dosage: UNK, 18 UNITS QD
     Route: 065
  19. INSULIN NOS [Concomitant]
     Active Substance: INSULIN NOS
     Dosage: UNK, MIXTARD 30/70 TWICE DAILY (START DATE: MANY YEARS AGO, VIAL)
     Route: 058
  20. EZETIMIBE\ROSUVASTATIN [Concomitant]
     Active Substance: EZETIMIBE\ROSUVASTATIN
     Indication: Lipids
     Dosage: 10/40MG, QD (TABLET)
     Route: 048
  21. OMEGA 3 [Concomitant]
     Active Substance: CAPSAICIN
     Indication: Lipids
     Dosage: UNK, QD (START DATE: 4 YEARS AGO, CAPSULE)
     Route: 048
  22. Dapaglif [Concomitant]
     Indication: Diabetes mellitus
     Dosage: 10/1000MG, QD (STARTED 2 YEARS AGO)
     Route: 048
  23. Spaniela [Concomitant]
     Indication: Oxygen therapy
     Dosage: 1 DOSAGE FORM, BID, STARTED: -2 OR 3 YEARS AGO
     Route: 065
  24. ATORVASTATIN [Concomitant]
     Active Substance: ATORVASTATIN
     Indication: Lipids increased
     Dosage: 1 DOSAGE FORM, QD, STARTED 2 OR 3 YEARS AGO AND STOPPED A MONTH AGO
     Route: 065
  25. FENOFIBRATE [Concomitant]
     Active Substance: FENOFIBRATE
     Indication: Blood triglycerides increased
     Dosage: 1 DOSAGE FORM, QD, 2 MONTHS AGO-STOPPED A MONTH AGO
     Route: 065

REACTIONS (7)
  - Hypotension [Recovered/Resolved]
  - Vision blurred [Unknown]
  - Movement disorder [Unknown]
  - Blood triglycerides increased [Unknown]
  - Product availability issue [Unknown]
  - Product dose omission issue [Unknown]
  - Off label use [Unknown]

NARRATIVE: CASE EVENT DATE: 20230701
